FAERS Safety Report 8826768 (Version 2)
Quarter: 2013Q1

REPORT INFORMATION
  Report Type: Spontaneous
  Country: GB (occurrence: GB)
  Receive Date: 20121005
  Receipt Date: 20130121
  Transmission Date: 20140127
  Serious: Yes (Other)
  Sender: FDA-Public Use
  Company Number: GB-GLAXOSMITHKLINE-B0833145A

PATIENT
  Age: 8 Year
  Sex: Female
  Weight: 34.9 kg

DRUGS (6)
  1. BECLOMETHASONE [Suspect]
     Indication: ASTHMA
     Route: 055
     Dates: start: 2007, end: 2012
  2. MONTELUKAST [Concomitant]
     Indication: ASTHMA
     Route: 048
     Dates: start: 2007
  3. OMEPRAZOLE [Concomitant]
     Indication: GASTROOESOPHAGEAL REFLUX DISEASE
     Route: 048
     Dates: start: 201009
  4. DOMPERIDONE [Concomitant]
     Indication: GASTROOESOPHAGEAL REFLUX DISEASE
     Route: 048
     Dates: start: 201009
  5. SYMBICORT [Concomitant]
     Indication: ASTHMA
     Dosage: 2IUAX PER DAY
     Route: 055
     Dates: start: 201201
  6. HYDROCORTISONE [Concomitant]
     Indication: ADRENAL DISORDER
     Route: 048
     Dates: start: 201203

REACTIONS (1)
  - ACTH stimulation test abnormal [Recovering/Resolving]
